FAERS Safety Report 9302748 (Version 17)
Quarter: 2019Q1

REPORT INFORMATION
  Report Type: Spontaneous
  Country: GB (occurrence: GB)
  Receive Date: 20130522
  Receipt Date: 20190309
  Transmission Date: 20190418
  Serious: Yes (Other)
  Sender: FDA-Public Use
  Company Number: PHFR2013GB002915

PATIENT
  Age: 30 Year
  Sex: Male

DRUGS (1)
  1. CLOZARIL [Suspect]
     Active Substance: CLOZAPINE
     Indication: SCHIZOPHRENIA
     Dosage: UNK
     Route: 048
     Dates: start: 20030723

REACTIONS (5)
  - White blood cell count decreased [Recovered/Resolved]
  - Velo-cardio-facial syndrome [Unknown]
  - Constipation [Unknown]
  - Thrombocytopenia [Recovering/Resolving]
  - Neutrophil count decreased [Recovered/Resolved]

NARRATIVE: CASE EVENT DATE: 20130415
